FAERS Safety Report 8395400-1 (Version None)
Quarter: 2012Q2

REPORT INFORMATION
  Report Type: 
  Country: None (occurrence: None)
  Receive Date: 20120530
  Receipt Date: 20120529
  Transmission Date: 20120825
  Serious: No
  Sender: FDA-Public Use
  Company Number: US-PFIZER INC-2012129472

PATIENT
  Sex: Female
  Weight: 54.422 kg

DRUGS (5)
  1. EFFEXOR XR [Suspect]
     Indication: ANXIETY
  2. SINGULAIR [Concomitant]
     Indication: ASTHMA
     Dosage: UNK
  3. EFFEXOR XR [Suspect]
     Indication: DEPRESSION
     Dosage: 75 MG, DAILY
     Route: 048
     Dates: start: 20120517
  4. CLARITIN [Concomitant]
     Indication: HYPERSENSITIVITY
     Dosage: UNK
  5. LIDODERM [Concomitant]
     Indication: ARTHRALGIA
     Dosage: UNK

REACTIONS (2)
  - PRURITUS GENERALISED [None]
  - INSOMNIA [None]
